FAERS Safety Report 8514885 (Version 34)
Quarter: 2015Q3

REPORT INFORMATION
  Report Type: Report from Study
  Country: CA (occurrence: CA)
  Receive Date: 20120416
  Receipt Date: 20150911
  Transmission Date: 20151125
  Serious: Yes (Hospitalization, Other)
  Sender: FDA-Public Use
  Company Number: CA-ROCHE-1052561

PATIENT
  Age: 44 Year
  Sex: Female
  Weight: 72 kg

DRUGS (10)
  1. ACTEMRA [Suspect]
     Active Substance: TOCILIZUMAB
     Indication: RHEUMATOID ARTHRITIS
     Route: 042
     Dates: start: 20111101
  2. BENADRYL [Concomitant]
     Active Substance: DIPHENHYDRAMINE HYDROCHLORIDE
     Route: 048
  3. LEVOFLOXACIN. [Suspect]
     Active Substance: LEVOFLOXACIN
     Indication: LUNG INFECTION
     Route: 065
     Dates: start: 20120718, end: 20120723
  4. ACTEMRA [Suspect]
     Active Substance: TOCILIZUMAB
     Route: 042
     Dates: start: 20140515
  5. BENADRYL PM (UNK INGREDIENTS) [Concomitant]
     Route: 065
  6. LEVOFLOXACIN. [Suspect]
     Active Substance: LEVOFLOXACIN
     Route: 065
     Dates: start: 201208, end: 201208
  7. ACTEMRA [Suspect]
     Active Substance: TOCILIZUMAB
     Route: 042
     Dates: start: 20140612
  8. ACTEMRA [Suspect]
     Active Substance: TOCILIZUMAB
     Route: 042
     Dates: start: 20141002
  9. ACTEMRA [Suspect]
     Active Substance: TOCILIZUMAB
     Route: 042
     Dates: start: 20150421
  10. ACTEMRA [Suspect]
     Active Substance: TOCILIZUMAB
     Route: 042
     Dates: start: 20130107

REACTIONS (38)
  - Hypertension [Recovered/Resolved]
  - Hypoaesthesia [Unknown]
  - Cellulitis [Recovered/Resolved]
  - Fatigue [Unknown]
  - Arthralgia [Unknown]
  - Oxygen saturation decreased [Unknown]
  - Headache [Recovered/Resolved]
  - Infusion related reaction [Unknown]
  - Pain [Not Recovered/Not Resolved]
  - Systemic lupus erythematosus [Not Recovered/Not Resolved]
  - Lung infection [Recovered/Resolved]
  - Abdominal pain [Recovered/Resolved]
  - Chest pain [Unknown]
  - Peripheral swelling [Recovered/Resolved]
  - Pain in extremity [Not Recovered/Not Resolved]
  - Stomatitis [Recovered/Resolved]
  - Pruritus [Unknown]
  - Decreased appetite [Recovered/Resolved]
  - Herpes zoster [Not Recovered/Not Resolved]
  - Asthma [Not Recovered/Not Resolved]
  - Asthma [Not Recovered/Not Resolved]
  - Poor quality sleep [Recovered/Resolved]
  - Chest pain [Recovered/Resolved]
  - Blood pressure increased [Unknown]
  - Muscle tightness [Unknown]
  - Rheumatoid arthritis [Not Recovered/Not Resolved]
  - Weight increased [Not Recovered/Not Resolved]
  - Wheezing [Recovering/Resolving]
  - Glaucoma [Unknown]
  - Swelling [Not Recovered/Not Resolved]
  - Rash [Recovered/Resolved]
  - Peripheral swelling [Not Recovered/Not Resolved]
  - Pharyngeal abscess [Recovering/Resolving]
  - Blood pressure increased [Unknown]
  - Poor venous access [Unknown]
  - Vaginal haemorrhage [Not Recovered/Not Resolved]
  - Gait disturbance [Not Recovered/Not Resolved]
  - Weight decreased [Unknown]

NARRATIVE: CASE EVENT DATE: 2012
